FAERS Safety Report 18349742 (Version 1)
Quarter: 2020Q4

REPORT INFORMATION
  Report Type: Spontaneous
  Country: US (occurrence: US)
  Receive Date: 20201006
  Receipt Date: 20201006
  Transmission Date: 20210114
  Serious: Yes (Other)
  Sender: FDA-Public Use
  Company Number: None

PATIENT
  Age: 51 Year
  Sex: Female

DRUGS (2)
  1. VIT D [Concomitant]
     Active Substance: VITAMIN D NOS
  2. NP THYROID [Suspect]
     Active Substance: LEVOTHYROXINE\LIOTHYRONINE
     Indication: HYPOTHYROIDISM
     Dosage: ?          OTHER STRENGTH:MCG;?
     Route: 048
     Dates: start: 20200801, end: 20200815

REACTIONS (3)
  - Depression [None]
  - Fatigue [None]
  - Recalled product administered [None]

NARRATIVE: CASE EVENT DATE: 20200815
